FAERS Safety Report 9387177 (Version 1)
Quarter: 2013Q3

REPORT INFORMATION
  Report Type: Report from Study
  Country: NO (occurrence: NO)
  Receive Date: 20130708
  Receipt Date: 20130708
  Transmission Date: 20140515
  Serious: Yes (Hospitalization, Other)
  Sender: FDA-Public Use
  Company Number: NO-ROCHE-1243350

PATIENT
  Sex: Female

DRUGS (4)
  1. NAPROXEN [Suspect]
     Indication: PRODUCT USED FOR UNKNOWN INDICATION
     Route: 065
  2. IBUPROFEN [Suspect]
     Indication: PRODUCT USED FOR UNKNOWN INDICATION
     Route: 065
  3. DICLOFENAC [Suspect]
     Indication: PRODUCT USED FOR UNKNOWN INDICATION
     Route: 065
  4. PIROXICAM [Suspect]
     Indication: PRODUCT USED FOR UNKNOWN INDICATION
     Route: 065

REACTIONS (9)
  - Urinary tract infection [Unknown]
  - Hypertension [Unknown]
  - Exposure during pregnancy [Unknown]
  - Vaginal haemorrhage [Unknown]
  - Postpartum haemorrhage [Unknown]
  - Pre-eclampsia [Unknown]
  - Eclampsia [Unknown]
  - Pyelonephritis [Unknown]
  - Proteinuria [Unknown]
